FAERS Safety Report 4790129-0 (Version None)
Quarter: 2005Q3

REPORT INFORMATION
  Report Type: 
  Country: None (occurrence: None)
  Receive Date: 20050914
  Receipt Date: 20040817
  Transmission Date: 20060218
  Serious: Yes (Death, Hospitalization)
  Sender: FDA-Public Use
  Company Number: 163-20785-04080392

PATIENT
  Age: 76 Year
  Sex: Male

DRUGS (2)
  1. THALOMID [Suspect]
     Indication: MULTIPLE MYELOMA
     Dosage: 150 MG, DAILY, ORAL
     Route: 048
     Dates: start: 20040601, end: 20040701
  2. DIALYSIS [Suspect]
     Indication: RENAL FAILURE

REACTIONS (4)
  - CATHETER SEPSIS [None]
  - DEATH [None]
  - MEDICAL DEVICE COMPLICATION [None]
  - SEPSIS [None]
